FAERS Safety Report 5040182-4 (Version None)
Quarter: 2006Q2

REPORT INFORMATION
  Report Type: 
  Country: None (occurrence: None)
  Receive Date: 20060630
  Receipt Date: 20060620
  Transmission Date: 20061013
  Serious: Yes (Other)
  Sender: FDA-Public Use
  Company Number: PHBS2006MX09250

PATIENT
  Age: 2 Month
  Sex: Male

DRUGS (1)
  1. PIMECROLIMUS [Suspect]
     Indication: ECZEMA
     Dosage: UNK, BID
     Route: 061

REACTIONS (7)
  - ACARODERMATITIS [None]
  - BLISTER [None]
  - ERYTHEMA [None]
  - RASH PAPULAR [None]
  - SCAB [None]
  - SKIN LESION [None]
  - SKIN NODULE [None]
